FAERS Safety Report 6856933-X (Version None)
Quarter: 2010Q3

REPORT INFORMATION
  Report Type: 
  Country: None (occurrence: None)
  Receive Date: 20100719
  Receipt Date: 20100719
  Transmission Date: 20110219
  Serious: Yes (Death)
  Sender: FDA-Public Use
  Company Number: IT-WYE-G06419910

PATIENT
  Sex: Male
  Weight: 60 kg

DRUGS (1)
  1. TORISEL [Suspect]
     Indication: ACUTE MYELOID LEUKAEMIA
     Dosage: NOT PROVIDED

REACTIONS (1)
  - DEATH [None]
